FAERS Safety Report 5287865-9 (Version None)
Quarter: 2007Q2

REPORT INFORMATION
  Report Type: 
  Country: None (occurrence: None)
  Receive Date: 20070405
  Receipt Date: 20070328
  Transmission Date: 20071010
  Serious: Yes (Hospitalization)
  Sender: FDA-Public Use
  Company Number: FR-BAXTER-2007BH003225

PATIENT
  Age: 36 Year
  Sex: Female

DRUGS (4)
  1. EXTRANEAL [Suspect]
     Indication: PERITONEAL DIALYSIS
     Route: 033
     Dates: start: 20060210, end: 20070101
  2. DIANEAL [Concomitant]
     Indication: PERITONEAL DIALYSIS
     Route: 033
     Dates: start: 20060210
  3. NUTRINEAL NOS WITH AMINO ACIDS [Concomitant]
     Indication: PERITONEAL DIALYSIS
     Route: 033
     Dates: start: 20060210
  4. FRESENIUS ISO-OSMOLAR SOLUTION [Concomitant]
     Indication: PERITONEAL DIALYSIS
     Route: 033
     Dates: start: 20040409

REACTIONS (2)
  - PERITONITIS [None]
  - SCLEROSING ENCAPSULATING PERITONITIS [None]
